FAERS Safety Report 26154648 (Version 2)
Quarter: 2025Q4

REPORT INFORMATION
  Report Type: Spontaneous
  Country: US (occurrence: US)
  Receive Date: 20251215
  Receipt Date: 20251215
  Transmission Date: 20260117
  Serious: Yes (Death, Other)
  Sender: ASSERTIO THERAPEUTICS
  Company Number: US-ASSERTIO THERAPEUTICS, INC.-US-2025AST000585

PATIENT
  Age: 60 Year
  Sex: Female

DRUGS (1)
  1. DICLOFENAC POTASSIUM [Suspect]
     Active Substance: DICLOFENAC POTASSIUM
     Indication: Product used for unknown indication
     Dosage: UNK
     Route: 065

REACTIONS (2)
  - Drug-induced liver injury [Recovering/Resolving]
  - Toxic epidermal necrolysis [Fatal]
